FAERS Safety Report 25721872 (Version 1)
Quarter: 2025Q3

REPORT INFORMATION
  Report Type: Spontaneous
  Country: EU (occurrence: EU)
  Receive Date: 20250825
  Receipt Date: 20250825
  Transmission Date: 20251021
  Serious: Yes (Death)
  Sender: MYLAN
  Company Number: EU-MYLANLABS-2025M1072731

PATIENT
  Age: 61 Year
  Sex: Male

DRUGS (4)
  1. SILDENAFIL [Suspect]
     Active Substance: SILDENAFIL
     Indication: Sexual dysfunction
  2. SILDENAFIL [Suspect]
     Active Substance: SILDENAFIL
     Route: 065
  3. SILDENAFIL [Suspect]
     Active Substance: SILDENAFIL
     Route: 065
  4. SILDENAFIL [Suspect]
     Active Substance: SILDENAFIL

REACTIONS (3)
  - Haemorrhage intracranial [Fatal]
  - Aneurysm ruptured [Fatal]
  - Aortic dissection [Fatal]
